FAERS Safety Report 26167293 (Version 1)
Quarter: 2025Q4

REPORT INFORMATION
  Report Type: Spontaneous
  Country: ID (occurrence: ID)
  Receive Date: 20251217
  Receipt Date: 20251217
  Transmission Date: 20260118
  Serious: Yes (Hospitalization)
  Sender: ACCORD
  Company Number: ID-MLMSERVICE-20251201-PI726470-00162-3

PATIENT
  Age: 52 Year
  Sex: Male

DRUGS (10)
  1. FUROSEMIDE [Suspect]
     Active Substance: FUROSEMIDE
     Indication: Diuretic therapy
  2. LEVOFLOXACIN [Suspect]
     Active Substance: LEVOFLOXACIN
     Indication: Product used for unknown indication
  3. INSULIN NOS [Concomitant]
     Active Substance: INSULIN NOS
  4. WARFARIN [Concomitant]
     Active Substance: WARFARIN
     Indication: Anticoagulant therapy
  5. METFORMIN [Concomitant]
     Active Substance: METFORMIN HYDROCHLORIDE
  6. GLIMEPIRIDE [Concomitant]
     Active Substance: GLIMEPIRIDE
  7. AMIODARONE [Concomitant]
     Active Substance: AMIODARONE
     Indication: Atrial fibrillation
     Dosage: 300 MG AMIODARONE WAS ADMINISTERED OVER 60 MINUTES
     Route: 042
  8. HEPARIN [Concomitant]
     Active Substance: HEPARIN SODIUM
     Indication: Anticoagulant therapy
  9. AMIODARONE [Concomitant]
     Active Substance: AMIODARONE
     Indication: Atrial fibrillation
     Route: 048
  10. AMIODARONE [Concomitant]
     Active Substance: AMIODARONE
     Indication: Atrial fibrillation
     Dosage: 900 MG AMIODARONE WAS ADMINISTERED OVER 24 HOURS

REACTIONS (1)
  - Renal impairment [Recovered/Resolved]
